FAERS Safety Report 18807801 (Version 1)
Quarter: 2021Q1

REPORT INFORMATION
  Report Type: Spontaneous
  Country: US (occurrence: US)
  Receive Date: 20210129
  Receipt Date: 20210129
  Transmission Date: 20210419
  Serious: Yes (Hospitalization, Other)
  Sender: FDA-Public Use
  Company Number: US-HIKMA PHARMACEUTICALS USA INC.-US-H14001-21-00429

PATIENT
  Age: 41 Year
  Sex: Female

DRUGS (3)
  1. HYDROMORPHONE [Suspect]
     Active Substance: HYDROMORPHONE
     Indication: ABDOMINAL PAIN
     Route: 065
     Dates: start: 2011
  2. LUBIPROSTONE [Concomitant]
     Active Substance: LUBIPROSTONE
     Indication: PRODUCT USED FOR UNKNOWN INDICATION
     Dosage: UNKNOWN
     Route: 065
  3. MORPHINE [Suspect]
     Active Substance: MORPHINE
     Indication: PRODUCT USED FOR UNKNOWN INDICATION
     Dosage: UNKNOWN
     Route: 065
     Dates: start: 2011

REACTIONS (3)
  - Narcotic bowel syndrome [Recovered/Resolved]
  - Off label use [Recovered/Resolved]
  - Withdrawal syndrome [Recovered/Resolved]
